FAERS Safety Report 20643149 (Version 1)
Quarter: 2022Q1

REPORT INFORMATION
  Report Type: Spontaneous
  Country: US (occurrence: None)
  Receive Date: 20220325
  Receipt Date: 20220325
  Transmission Date: 20220423
  Serious: Yes (Other)
  Sender: FDA-Public Use
  Company Number: None

PATIENT

DRUGS (1)
  1. EVUSHELD [Suspect]
     Active Substance: CILGAVIMAB\TIXAGEVIMAB
     Indication: COVID-19
     Dosage: FREQUENCY : ONCE;?
     Route: 030
     Dates: start: 20220325, end: 20220325

REACTIONS (6)
  - Hypertension [None]
  - Flushing [None]
  - Flushing [None]
  - Feeling hot [None]
  - Sensory disturbance [None]
  - Dysphonia [None]

NARRATIVE: CASE EVENT DATE: 19640330
